FAERS Safety Report 12434147 (Version 3)
Quarter: 2016Q2

REPORT INFORMATION
  Report Type: Spontaneous
  Country: JP (occurrence: JP)
  Receive Date: 20160603
  Receipt Date: 20160625
  Transmission Date: 20160815
  Serious: Yes (Death, Hospitalization)
  Sender: FDA-Public Use
  Company Number: PHJP2016JP014533

PATIENT
  Age: 77 Year
  Sex: Male

DRUGS (1)
  1. NEORAL [Suspect]
     Active Substance: CYCLOSPORINE
     Indication: ACUTE RESPIRATORY DISTRESS SYNDROME
     Dosage: 150 MG, QD
     Route: 048
     Dates: start: 201605, end: 201606

REACTIONS (8)
  - Sepsis [Fatal]
  - Intestinal obstruction [Unknown]
  - Acute respiratory distress syndrome [Fatal]
  - Oral administration complication [Unknown]
  - Ileus [Unknown]
  - Product use issue [Unknown]
  - Interstitial lung disease [Fatal]
  - Flatulence [Unknown]

NARRATIVE: CASE EVENT DATE: 201605
